FAERS Safety Report 9808026 (Version 1)
Quarter: 2014Q1

REPORT INFORMATION
  Report Type: Spontaneous
  Country: US (occurrence: US)
  Receive Date: 20140110
  Receipt Date: 20140110
  Transmission Date: 20141002
  Serious: Yes (Other)
  Sender: FDA-Public Use
  Company Number: US-GLAXOSMITHKLINE-A1051132A

PATIENT
  Age: 58 Year
  Sex: Female
  Weight: 59.1 kg

DRUGS (8)
  1. CEFTIN [Suspect]
     Indication: URINARY TRACT INFECTION
     Dosage: 500MG TWICE PER DAY
     Route: 048
     Dates: start: 20131001, end: 20131007
  2. LEVAQUIN [Suspect]
     Indication: URINARY TRACT INFECTION
     Dosage: 500MG PER DAY
     Route: 048
     Dates: start: 20131016, end: 20131022
  3. CIPRO [Suspect]
     Indication: URINARY TRACT INFECTION
     Dosage: 500MG TWICE PER DAY
     Route: 065
     Dates: start: 20131008, end: 20131015
  4. ESTRING [Suspect]
     Indication: PRODUCT USED FOR UNKNOWN INDICATION
  5. ZANTAC [Concomitant]
     Indication: GASTRIC DISORDER
     Dosage: 150MG TWICE PER DAY
  6. TOPAMAX [Concomitant]
     Indication: MIGRAINE
  7. NADOLOL [Concomitant]
     Indication: MIGRAINE
  8. MOBIC [Concomitant]
     Indication: ARTHRITIS
     Dosage: 75MG TWICE PER DAY

REACTIONS (2)
  - Drug ineffective [Unknown]
  - Suspected transmission of an infectious agent via product [Unknown]
